FAERS Safety Report 19280668 (Version 2)
Quarter: 2021Q3

REPORT INFORMATION
  Report Type: Spontaneous
  Country: US (occurrence: US)
  Receive Date: 20210520
  Receipt Date: 20210803
  Transmission Date: 20211014
  Serious: Yes (Other)
  Sender: FDA-Public Use
  Company Number: US-ALLERGAN-2119042US

PATIENT
  Sex: Male

DRUGS (1)
  1. NAMZARIC [Suspect]
     Active Substance: DONEPEZIL HYDROCHLORIDE\MEMANTINE HYDROCHLORIDE
     Indication: DEMENTIA ALZHEIMER^S TYPE
     Dosage: 1 DF, QHS
     Route: 048
     Dates: start: 2019

REACTIONS (7)
  - Wrong technique in product usage process [Unknown]
  - Drug ineffective [Unknown]
  - Colonic abscess [Unknown]
  - Gait disturbance [Unknown]
  - Cardiac pacemaker insertion [Unknown]
  - Speech disorder [Unknown]
  - Incontinence [Not Recovered/Not Resolved]

NARRATIVE: CASE EVENT DATE: 2018
